FAERS Safety Report 9485241 (Version 1)
Quarter: 2013Q3

REPORT INFORMATION
  Report Type: Spontaneous
  Country: US (occurrence: US)
  Receive Date: 20130828
  Receipt Date: 20130828
  Transmission Date: 20140515
  Serious: Yes (Other)
  Sender: FDA-Public Use
  Company Number: US-BAXTER-2013BAX033259

PATIENT
  Age: 17 Year
  Sex: Female

DRUGS (2)
  1. GAMMAGARD LIQUID [Suspect]
     Indication: PRIMARY IMMUNODEFICIENCY SYNDROME
     Route: 065
     Dates: start: 20130810, end: 20130810
  2. GAMMAGARD LIQUID [Suspect]
     Route: 065
     Dates: start: 201210

REACTIONS (5)
  - Heart rate decreased [Unknown]
  - Headache [Unknown]
  - Migraine [Unknown]
  - Nausea [Unknown]
  - Blood pressure fluctuation [Unknown]
